FAERS Safety Report 6409084-2 (Version None)
Quarter: 2009Q4

REPORT INFORMATION
  Report Type: 
  Country: None (occurrence: None)
  Receive Date: 20091019
  Receipt Date: 20091019
  Transmission Date: 20100525
  Serious: Yes (Death)
  Sender: FDA-Public Use
  Company Number: None

PATIENT
  Age: 82 Year
  Sex: Male
  Weight: 58.9676 kg

DRUGS (2)
  1. RISPERDAL [Suspect]
     Indication: DEMENTIA ALZHEIMER'S TYPE
     Dosage: SEVERAL MG PO
     Route: 048
     Dates: start: 20090427, end: 20090504
  2. SEROQUEL [Suspect]
     Indication: DELIRIUM
     Dosage: UNKNOWN PO
     Route: 048
     Dates: start: 20090509, end: 20090523

REACTIONS (8)
  - COLITIS ULCERATIVE [None]
  - CONDITION AGGRAVATED [None]
  - DEHYDRATION [None]
  - DELIRIUM [None]
  - DYSPHAGIA [None]
  - FLUID INTAKE REDUCED [None]
  - HYPOPHAGIA [None]
  - WEIGHT DECREASED [None]
